FAERS Safety Report 19651199 (Version 1)
Quarter: 2021Q3

REPORT INFORMATION
  Report Type: Spontaneous
  Country: PT (occurrence: PT)
  Receive Date: 20210803
  Receipt Date: 20210803
  Transmission Date: 20211014
  Serious: Yes (Disabling)
  Sender: FDA-Public Use
  Company Number: PT-ROCHE-2881205

PATIENT
  Age: 53 Year
  Sex: Female

DRUGS (2)
  1. MABTHERA [Suspect]
     Active Substance: RITUXIMAB
     Dosage: COMO PARTE PROTOCOLO R?GEMOX
     Route: 042
     Dates: start: 20210705, end: 20210705
  2. MABTHERA [Suspect]
     Active Substance: RITUXIMAB
     Indication: NON-HODGKIN^S LYMPHOMA
     Dosage: PARTE PROTOCOLO R?GEMOX
     Route: 042
     Dates: start: 20210705, end: 20210705

REACTIONS (4)
  - Eye oedema [Recovered/Resolved]
  - Cheilitis [Recovered/Resolved]
  - Eyelid rash [Recovered/Resolved]
  - Lip oedema [Recovered/Resolved]

NARRATIVE: CASE EVENT DATE: 20210705
